FAERS Safety Report 18832970 (Version 1)
Quarter: 2021Q1

REPORT INFORMATION
  Report Type: Report from Study
  Country: None (occurrence: RO)
  Receive Date: 20210203
  Receipt Date: 20210203
  Transmission Date: 20210419
  Serious: Yes (Death)
  Sender: FDA-Public Use
  Company Number: RO-ABBVIE-21K-135-3756863-00

PATIENT
  Age: 72 Year
  Sex: Female

DRUGS (2)
  1. EXVIERA [Suspect]
     Active Substance: DASABUVIR
     Indication: HEPATIC CIRRHOSIS
     Route: 048
     Dates: start: 20200610, end: 20200901
  2. VIEKIRAX [Suspect]
     Active Substance: OMBITASVIR\PARITAPREVIR\RITONAVIR
     Indication: HEPATIC CIRRHOSIS
     Route: 048
     Dates: start: 20200610, end: 20200901

REACTIONS (2)
  - Cardiac failure [Fatal]
  - Bronchitis chronic [Fatal]

NARRATIVE: CASE EVENT DATE: 20201008
